FAERS Safety Report 6404912-9 (Version None)
Quarter: 2009Q4

REPORT INFORMATION
  Report Type: 
  Country: None (occurrence: None)
  Receive Date: 20091013
  Receipt Date: 20090928
  Transmission Date: 20100525
  Serious: Yes (Other)
  Sender: FDA-Public Use
  Company Number: 8052484

PATIENT
  Age: 16 Year
  Sex: Male
  Weight: 72 kg

DRUGS (2)
  1. KEPPRA [Suspect]
     Indication: PARTIAL SEIZURES
     Dosage: 3000 MG /D PO
     Route: 048
     Dates: start: 20060901
  2. KEPPRA [Suspect]
     Indication: PARTIAL SEIZURES
     Dosage: 2000 MG 2/D PO
     Route: 048
     Dates: start: 20071120

REACTIONS (3)
  - HYPERPHOSPHATURIA [None]
  - HYPOPHOSPHATAEMIA [None]
  - RENAL TUBULAR DISORDER [None]
